FAERS Safety Report 10034089 (Version 1)
Quarter: 2014Q1

REPORT INFORMATION
  Report Type: Spontaneous
  Country: US (occurrence: None)
  Receive Date: 20140324
  Receipt Date: 20140324
  Transmission Date: 20141002
  Serious: Yes (Disabling)
  Sender: FDA-Public Use
  Company Number: None

PATIENT
  Age: 75 Year
  Sex: Female
  Weight: 79.38 kg

DRUGS (1)
  1. PROLIA AMGEN [Suspect]
     Indication: OSTEOPOROSIS
     Dosage: EVERY SIX  MONTHS?INTO THE MUSCLE
     Dates: start: 20111230, end: 20120730

REACTIONS (1)
  - Tooth disorder [None]
